FAERS Safety Report 9172588 (Version 2)
Quarter: 2013Q1

REPORT INFORMATION
  Report Type: Spontaneous
  Country: US (occurrence: US)
  Receive Date: 20130319
  Receipt Date: 20130326
  Transmission Date: 20140127
  Serious: No
  Sender: FDA-Public Use
  Company Number: US-009507513-1303USA007575

PATIENT
  Age: 43 Year
  Sex: Female

DRUGS (1)
  1. PEGINTRON [Suspect]
     Dosage: 1 DF, UNK
     Route: 058
     Dates: start: 20121031

REACTIONS (4)
  - Drug dose omission [Unknown]
  - Product quality issue [Unknown]
  - Migraine [Unknown]
  - Injection site rash [Unknown]
